FAERS Safety Report 11868130 (Version 1)
Quarter: 2015Q4

REPORT INFORMATION
  Report Type: Report from Study
  Country: US (occurrence: US)
  Receive Date: 20151224
  Receipt Date: 20151224
  Transmission Date: 20160305
  Serious: Yes (Hospitalization)
  Sender: FDA-Public Use
  Company Number: US-JNJFOC-20150204656

PATIENT
  Age: 81 Year
  Sex: Male

DRUGS (33)
  1. LISINOPRIL. [Concomitant]
     Active Substance: LISINOPRIL
  2. MESALAMINE. [Concomitant]
     Active Substance: MESALAMINE
     Route: 048
  3. LEVOSALBUTAMOL [Concomitant]
     Active Substance: LEVALBUTEROL
     Dosage: PRN, Q X 6 HRLY
     Route: 049
  4. CARVEDILOL. [Concomitant]
     Active Substance: CARVEDILOL
  5. PANTOPRAZOLE [Concomitant]
     Active Substance: PANTOPRAZOLE SODIUM
     Indication: PROPHYLAXIS
  6. RITUXIMAB [Suspect]
     Active Substance: RITUXIMAB
     Indication: MANTLE CELL LYMPHOMA
     Route: 042
  7. ZOSYN [Concomitant]
     Active Substance: PIPERACILLIN SODIUM\TAZOBACTAM SODIUM
     Route: 042
  8. PREDNISONE. [Concomitant]
     Active Substance: PREDNISONE
     Dosage: 1 GTS, AT BEDTIME
     Route: 047
  9. TAMSULOSIN [Concomitant]
     Active Substance: TAMSULOSIN
     Dosage: AT BEDTIME
     Route: 048
  10. ACETAMINOPHEN. [Concomitant]
     Active Substance: ACETAMINOPHEN
  11. MORPHINE [Concomitant]
     Active Substance: MORPHINE
  12. LINEZOLID. [Concomitant]
     Active Substance: LINEZOLID
  13. SODIUM CHLORIDE. [Concomitant]
     Active Substance: SODIUM CHLORIDE
  14. FLUTICASONE [Concomitant]
     Active Substance: FLUTICASONE\FLUTICASONE PROPIONATE
  15. IBRUTINIB [Suspect]
     Active Substance: IBRUTINIB
     Indication: MANTLE CELL LYMPHOMA
     Route: 048
  16. MOMETASONE FUROATE. [Concomitant]
     Active Substance: MOMETASONE FUROATE
  17. ALBUTEROL. [Concomitant]
     Active Substance: ALBUTEROL
  18. HYDROCORTISONE. [Concomitant]
     Active Substance: HYDROCORTISONE
  19. METOPROLOL SUCCINATE. [Concomitant]
     Active Substance: METOPROLOL SUCCINATE
     Route: 048
  20. CETIRIZINE [Concomitant]
     Active Substance: CETIRIZINE HYDROCHLORIDE
     Route: 048
  21. DIGOXIN. [Concomitant]
     Active Substance: DIGOXIN
     Route: 048
  22. BECLOMETHASONE [Concomitant]
     Active Substance: BECLOMETHASONE
  23. ZYVOX [Concomitant]
     Active Substance: LINEZOLID
  24. ATROVENT [Concomitant]
     Active Substance: IPRATROPIUM BROMIDE
  25. IPRATROPIUM BROMIDE. [Concomitant]
     Active Substance: IPRATROPIUM BROMIDE
     Dosage: PRN, QX6 HRLY
  26. ONDANSETRON [Concomitant]
     Active Substance: ONDANSETRON
  27. BENZONATATE. [Concomitant]
     Active Substance: BENZONATATE
  28. HYPROMELLOSE [Concomitant]
     Active Substance: HYPROMELLOSES
  29. HEPARIN [Concomitant]
     Active Substance: HEPARIN SODIUM
  30. CIPROFLOXACIN. [Concomitant]
     Active Substance: CIPROFLOXACIN
     Dates: end: 20150128
  31. ASPIRIN. [Concomitant]
     Active Substance: ASPIRIN
  32. ACETYLCYSTEINE. [Concomitant]
     Active Substance: ACETYLCYSTEINE
  33. INSULIN [Concomitant]
     Active Substance: INSULIN NOS

REACTIONS (1)
  - Pleural effusion [Unknown]

NARRATIVE: CASE EVENT DATE: 20150128
